FAERS Safety Report 23546701 (Version 1)
Quarter: 2024Q1

REPORT INFORMATION
  Report Type: Spontaneous
  Country: US (occurrence: US)
  Receive Date: 20240221
  Receipt Date: 20240221
  Transmission Date: 20240410
  Serious: Yes (Other)
  Sender: FDA-Public Use
  Company Number: US-BRISTOL-MYERS SQUIBB COMPANY-2024-024554

PATIENT
  Age: 60 Year
  Sex: Female

DRUGS (3)
  1. REVLIMID [Suspect]
     Active Substance: LENALIDOMIDE
     Indication: Plasma cell myeloma
     Dosage: FREQUENCY: TAKE 1CAPSULE BY MOUTH 1 TIME A DAY FOR 21 DAYS ON AND 7 DAYS OFF
     Route: 048
     Dates: start: 202310
  2. NINLARO [Suspect]
     Active Substance: IXAZOMIB CITRATE
     Indication: Plasma cell myeloma
     Dosage: FREQUENCY: (NINLARO) TAKE 1CAPSULE (3MG) BY MOUTH ON DAYS 1, 8, 15 OF A 28 DAY CYCLE
     Route: 048
  3. NINLARO [Suspect]
     Active Substance: IXAZOMIB CITRATE
     Dosage: FREQUENCY: (NINLARO) TAKE 1CAPSULE (3MG) BY MOUTH ON DAYS 1, 8, 15 OF A 28 DAY CYCLE
     Route: 048
     Dates: end: 20240209

REACTIONS (10)
  - Fatigue [Unknown]
  - Spinal cord compression [Unknown]
  - Myalgia [Recovering/Resolving]
  - Constipation [Recovered/Resolved]
  - Diarrhoea [Recovered/Resolved]
  - Paraesthesia [Unknown]
  - Raynaud^s phenomenon [Unknown]
  - Plasma cell myeloma [Unknown]
  - Skin discolouration [Recovered/Resolved]
  - Injury [Recovering/Resolving]

NARRATIVE: CASE EVENT DATE: 20240209
